FAERS Safety Report 5663812-2 (Version None)
Quarter: 2008Q1

REPORT INFORMATION
  Report Type: 
  Country: None (occurrence: None)
  Receive Date: 20080310
  Receipt Date: 20080226
  Transmission Date: 20080703
  Serious: Yes (Other)
  Sender: FDA-Public Use
  Company Number: WAES 0712BRA00004

PATIENT
  Age: 56 Year
  Sex: Female

DRUGS (3)
  1. JANUVIA [Suspect]
     Indication: DIABETES MELLITUS
     Dosage: 100 MG/DAILY PO
     Route: 048
     Dates: start: 20071127, end: 20071130
  2. PIOGLITAZONE HCL [Suspect]
     Indication: BLOOD GLUCOSE ABNORMAL
     Dosage: 30 MG/DAILY PO
     Route: 048
     Dates: start: 20071127, end: 20071130
  3. ACETAMINOPHEN (+) CAFFEINE (+) CARISOPRODOL (+) [Suspect]
     Indication: PAIN
     Dosage: PO
     Route: 048
     Dates: start: 20071030, end: 20071102

REACTIONS (1)
  - PUSTULAR PSORIASIS [None]
